FAERS Safety Report 11814688 (Version 1)
Quarter: 2015Q4

REPORT INFORMATION
  Report Type: Report from Study
  Country: IE (occurrence: IE)
  Receive Date: 20151209
  Receipt Date: 20151209
  Transmission Date: 20160305
  Serious: Yes (Death, Other)
  Sender: FDA-Public Use
  Company Number: IE-AMGEN-IRLSL2015129105

PATIENT
  Age: 76 Year
  Sex: Male

DRUGS (14)
  1. BISOP [Concomitant]
  2. ATORVASTATIN [Concomitant]
     Active Substance: ATORVASTATIN
  3. WARFARIN [Concomitant]
     Active Substance: WARFARIN
  4. NOVIMAX [Concomitant]
  5. ARANESP [Suspect]
     Active Substance: DARBEPOETIN ALFA
     Indication: CHRONIC KIDNEY DISEASE
     Dosage: 30 MUG, QWK
     Route: 058
     Dates: start: 20140306
  6. LEXAPRO [Concomitant]
     Active Substance: ESCITALOPRAM OXALATE
  7. LERCANIDIPINE                      /01366402/ [Concomitant]
     Active Substance: LERCANIDIPINE HYDROCHLORIDE
  8. LANOXIN [Concomitant]
     Active Substance: DIGOXIN
  9. ISTOLDE [Concomitant]
  10. ONE ALPHA [Concomitant]
     Active Substance: ALFACALCIDOL
  11. SODIUM BICARBONATE. [Concomitant]
     Active Substance: SODIUM BICARBONATE
  12. OMEPRAZOLE. [Concomitant]
     Active Substance: OMEPRAZOLE
  13. ISOMONIT [Concomitant]
  14. GLICLAZIDE [Concomitant]
     Active Substance: GLICLAZIDE

REACTIONS (1)
  - Death [Fatal]

NARRATIVE: CASE EVENT DATE: 201511
